FAERS Safety Report 15658898 (Version 2)
Quarter: 2018Q4

REPORT INFORMATION
  Report Type: Spontaneous
  Country: US (occurrence: US)
  Receive Date: 20181126
  Receipt Date: 20181129
  Transmission Date: 20190205
  Serious: No
  Sender: FDA-Public Use
  Company Number: US-CELGENEUS-USA-20181105541

PATIENT
  Age: 63 Year
  Sex: Male

DRUGS (2)
  1. OTEZLA [Suspect]
     Active Substance: APREMILAST
     Dosage: 60 MILLIGRAM
     Route: 048
     Dates: start: 2018, end: 201810
  2. OTEZLA [Suspect]
     Active Substance: APREMILAST
     Indication: PSORIASIS
     Dosage: 10/20/30 MG (28D)
     Route: 048
     Dates: start: 201809

REACTIONS (2)
  - Nausea [Unknown]
  - Product dose omission [Unknown]

NARRATIVE: CASE EVENT DATE: 2018
